FAERS Safety Report 20401715 (Version 2)
Quarter: 2022Q1

REPORT INFORMATION
  Report Type: Spontaneous
  Country: US (occurrence: US)
  Receive Date: 20220131
  Receipt Date: 20220201
  Transmission Date: 20220423
  Serious: No
  Sender: FDA-Public Use
  Company Number: US-ABBVIE-21K-163-4104568-00

PATIENT
  Age: 30 Year
  Sex: Female
  Weight: 53.572 kg

DRUGS (5)
  1. HUMIRA [Suspect]
     Active Substance: ADALIMUMAB
     Indication: Colitis ulcerative
     Route: 058
     Dates: start: 20210813
  2. LOESTRIN NOS [Concomitant]
     Active Substance: ETHINYL ESTRADIOL\NORETHINDRONE ACETATE
     Indication: Contraception
  3. LIALDA [Concomitant]
     Active Substance: MESALAMINE
     Indication: Colitis ulcerative
  4. UCERIS [Concomitant]
     Active Substance: BUDESONIDE
     Indication: Colitis ulcerative
  5. SERTRALINE [Concomitant]
     Active Substance: SERTRALINE HYDROCHLORIDE
     Indication: Perinatal depression

REACTIONS (7)
  - Injection site swelling [Recovered/Resolved]
  - Injection site pruritus [Recovered/Resolved]
  - Injection site erythema [Not Recovered/Not Resolved]
  - Injection site papule [Not Recovered/Not Resolved]
  - Injection site bruising [Not Recovered/Not Resolved]
  - Arthralgia [Unknown]
  - Injection site pruritus [Not Recovered/Not Resolved]

NARRATIVE: CASE EVENT DATE: 20210913
